FAERS Safety Report 13182862 (Version 3)
Quarter: 2017Q2

REPORT INFORMATION
  Report Type: Spontaneous
  Country: US (occurrence: US)
  Receive Date: 20170203
  Receipt Date: 20170418
  Transmission Date: 20170830
  Serious: Yes (Hospitalization, Other)
  Sender: FDA-Public Use
  Company Number: US-PFIZER INC-2017044389

PATIENT
  Age: 47 Year
  Sex: Male
  Weight: 90 kg

DRUGS (5)
  1. ADVIL [Suspect]
     Active Substance: IBUPROFEN
     Indication: SPINAL OPERATION
     Dosage: 200 MG, AS NEEDED
     Route: 048
     Dates: end: 201612
  2. RANITIDINE. [Concomitant]
     Active Substance: RANITIDINE
     Indication: GASTROOESOPHAGEAL REFLUX DISEASE
     Dosage: 300 MG, 1X/DAY
  3. ADVIL [Suspect]
     Active Substance: IBUPROFEN
     Indication: BACK PAIN
     Dosage: 200 MG, 4X/DAY
     Dates: end: 201701
  4. ADVIL [Suspect]
     Active Substance: IBUPROFEN
     Indication: PAIN
  5. RANITIDINE. [Concomitant]
     Active Substance: RANITIDINE
     Indication: DYSPEPSIA
     Dosage: 150 MG, UNK

REACTIONS (6)
  - Urticaria [Not Recovered/Not Resolved]
  - Obstructive airways disorder [Recovered/Resolved]
  - Drug hypersensitivity [Not Recovered/Not Resolved]
  - Anaphylactic shock [Recovered/Resolved with Sequelae]
  - Skin swelling [Recovered/Resolved]
  - Product quality issue [Not Recovered/Not Resolved]

NARRATIVE: CASE EVENT DATE: 201608
